FAERS Safety Report 6785998 (Version 2)
Quarter: 2022Q1

REPORT INFORMATION
  Report Type: Report from Study
  Country: US (occurrence: US)
  Receive Date: 20081013
  Receipt Date: 20220114
  Transmission Date: 20220423
  Serious: Yes (Death, Hospitalization, Other)
  Sender: FDA-Public Use
  Company Number: US-PFIZER INC-2008083046

PATIENT
  Age: 58 Year
  Sex: Male
  Weight: 87.3 kg

DRUGS (6)
  1. SUTENT [Suspect]
     Active Substance: SUNITINIB MALATE
     Indication: Follicular thyroid cancer
     Dosage: TOTAL DOSE ADMIN AT 6TH CYCLE: 1400 MG,QD X 4 WEEKS
     Route: 048
     Dates: start: 20070807, end: 20080219
  2. AMLODIPINE [Concomitant]
     Active Substance: AMLODIPINE BESYLATE
  3. ASPIRIN [Concomitant]
     Active Substance: ASPIRIN
  4. CALCIUM [Concomitant]
     Active Substance: CALCIUM
  5. VITAMIN D [Concomitant]
     Active Substance: VITAMIN D NOS
  6. LEVOTHYROXINE [Concomitant]
     Active Substance: LEVOTHYROXINE

REACTIONS (5)
  - Respiratory failure [Unknown]
  - Hepatic failure [Fatal]
  - Left ventricular dysfunction [Fatal]
  - Hepatic failure [Unknown]
  - Acute kidney injury [Unknown]

NARRATIVE: CASE EVENT DATE: 20080219
